FAERS Safety Report 7797768-3 (Version None)
Quarter: 2011Q4

REPORT INFORMATION
  Report Type: 
  Country: None (occurrence: None)
  Receive Date: 20111005
  Receipt Date: 20110921
  Transmission Date: 20120403
  Serious: Yes (Hospitalization, Other)
  Sender: FDA-Public Use
  Company Number: PHHY2011JP61708

PATIENT
  Age: 48 Year
  Sex: Male

DRUGS (8)
  1. NEORAL [Suspect]
     Dosage: UNK UKN, UNK
     Route: 048
     Dates: start: 20100101
  2. METHYLPREDNISOLONE [Concomitant]
     Dosage: UNK UKN, UNK
  3. STEROIDS NOS [Concomitant]
     Dosage: UNK UKN, UNK
  4. NAFAMOSTAT MESILATE [Concomitant]
     Dosage: UNK UKN, UNK
  5. ASPIRIN [Concomitant]
     Dosage: UNK UKN, UNK
  6. MYCOPHENOLATE MOFETIL [Concomitant]
     Dosage: UNK UKN, UNK
  7. BASILIXIMAB [Concomitant]
     Dosage: UNK UKN, UNK
  8. NEORAL [Suspect]
     Indication: RENAL TRANSPLANT
     Dosage: UNK UKN, UNK
     Route: 048

REACTIONS (7)
  - MYOCARDIAL ISCHAEMIA [None]
  - CHEST PAIN [None]
  - ANGINA PECTORIS [None]
  - CORONARY ARTERY RESTENOSIS [None]
  - RENAL TUBULAR NECROSIS [None]
  - CORONARY ARTERY STENOSIS [None]
  - NEPHROPATHY TOXIC [None]
